FAERS Safety Report 9207495 (Version 1)
Quarter: 2013Q2

REPORT INFORMATION
  Report Type: Report from Study
  Country: US (occurrence: US)
  Receive Date: 20130403
  Receipt Date: 20130403
  Transmission Date: 20140414
  Serious: Yes (Other)
  Sender: FDA-Public Use
  Company Number: US-ROCHE-1195079

PATIENT
  Age: 66 Year
  Sex: Male
  Weight: 90.35 kg

DRUGS (1)
  1. ERIVEDGE [Suspect]
     Indication: BASAL CELL CARCINOMA
     Route: 048
     Dates: start: 20121231, end: 20130206

REACTIONS (2)
  - Hepatic enzyme increased [Recovered/Resolved]
  - Muscle spasms [Recovered/Resolved]
